FAERS Safety Report 14355270 (Version 2)
Quarter: 2018Q1

REPORT INFORMATION
  Report Type: Spontaneous
  Country: DE (occurrence: DE)
  Receive Date: 20180105
  Receipt Date: 20180131
  Transmission Date: 20180509
  Serious: Yes (Death, Hospitalization, Other)
  Sender: FDA-Public Use
  Company Number: DE-AUROBINDO-AUR-APL-2018-000285

PATIENT
  Age: 78 Year
  Sex: Male

DRUGS (37)
  1. QUETIAPINE FUMARATE. [Suspect]
     Active Substance: QUETIAPINE FUMARATE
     Route: 065
     Dates: start: 2016
  2. DEXTROMETHORPHAN HYDROBROMIDE. [Suspect]
     Active Substance: DEXTROMETHORPHAN HYDROBROMIDE
     Route: 065
     Dates: start: 2017
  3. PAROXETINE. [Suspect]
     Active Substance: PAROXETINE
     Indication: DELIRIUM
  4. LORAZEPAM. [Suspect]
     Active Substance: LORAZEPAM
     Indication: DELIRIUM
     Dosage: ()
     Route: 065
     Dates: start: 2016
  5. TRAZODONE [Concomitant]
     Active Substance: TRAZODONE HYDROCHLORIDE
     Dosage: ()
     Route: 065
  6. QUETIAPINE FUMARATE. [Suspect]
     Active Substance: QUETIAPINE FUMARATE
     Indication: DEMENTIA WITH LEWY BODIES
     Dosage: 150 MG, DAILY
     Route: 065
     Dates: start: 2017
  7. SPIRIVA [Suspect]
     Active Substance: TIOTROPIUM BROMIDE MONOHYDRATE
     Indication: PNEUMONIA
     Dosage: ()
     Route: 065
     Dates: start: 201601
  8. DRONABINOL. [Suspect]
     Active Substance: DRONABINOL
     Indication: DELIRIUM
     Dosage: 2.5 MG, DAILY
     Route: 065
  9. DRONABINOL. [Suspect]
     Active Substance: DRONABINOL
     Route: 065
  10. DRONABINOL. [Suspect]
     Active Substance: DRONABINOL
  11. AMISULPRIDE [Concomitant]
     Active Substance: AMISULPRIDE
     Dosage: ()
     Route: 065
  12. FLUPENTIXOL [Concomitant]
     Active Substance: FLUPENTIXOL
     Dosage: DOSE RAISED TO 20 MG/DAY ()
     Route: 048
  13. PAROXETINE. [Suspect]
     Active Substance: PAROXETINE
     Indication: DELIRIUM
     Dosage: 10 MG, DAILY
     Route: 065
     Dates: start: 2017
  14. DRONABINOL. [Suspect]
     Active Substance: DRONABINOL
     Dosage: 2.5 MG, DAILY
     Route: 065
  15. DEXTROMETHORPHAN HYDROBROMIDE. [Suspect]
     Active Substance: DEXTROMETHORPHAN HYDROBROMIDE
     Indication: DELIRIUM
     Dosage: TWO DIVIDED DOSES ()
     Route: 065
     Dates: start: 2017
  16. ZUCLOPENTHIXOL [Concomitant]
     Active Substance: ZUCLOPENTHIXOL
     Dosage: ()
     Route: 065
  17. FLUPENTIXOL [Concomitant]
     Active Substance: FLUPENTIXOL
     Dosage: ()
     Route: 048
  18. RISPERIDONE. [Concomitant]
     Active Substance: RISPERIDONE
     Dosage: ()
     Route: 065
  19. CARBAMAZEPINE. [Concomitant]
     Active Substance: CARBAMAZEPINE
     Dosage: ()
     Route: 065
  20. QUETIAPINE FUMARATE. [Suspect]
     Active Substance: QUETIAPINE FUMARATE
     Dosage: 150 MG, UNK
     Route: 065
     Dates: start: 2016
  21. RIVASTIGMINE. [Concomitant]
     Active Substance: RIVASTIGMINE
     Indication: PRODUCT USED FOR UNKNOWN INDICATION
     Dosage: ()
     Route: 065
  22. QUETIAPINE FUMARATE. [Suspect]
     Active Substance: QUETIAPINE FUMARATE
     Indication: DELIRIUM
     Dosage: ()
     Route: 065
     Dates: start: 2016
  23. QUETIAPINE FUMARATE. [Suspect]
     Active Substance: QUETIAPINE FUMARATE
     Dosage: 150 MG, UNK
     Route: 065
     Dates: start: 2016
  24. DRONABINOL. [Suspect]
     Active Substance: DRONABINOL
     Dosage: DOSAGE RANGING FROM 2.5-15 MG/D; LATER INCREASED
     Route: 065
  25. PIPAMPERONE [Concomitant]
     Active Substance: PIPAMPERONE
     Dosage: ()
     Route: 065
  26. BENPERIDOL [Concomitant]
     Active Substance: BENPERIDOL
     Dosage: ()
     Route: 065
  27. QUETIAPINE FUMARATE. [Suspect]
     Active Substance: QUETIAPINE FUMARATE
     Route: 065
     Dates: start: 2017
  28. QUETIAPINE FUMARATE. [Suspect]
     Active Substance: QUETIAPINE FUMARATE
     Dosage: FINAL DOSE OF 100 MG/D ()
     Route: 048
  29. DIAZEPAM. [Concomitant]
     Active Substance: DIAZEPAM
     Dosage: ()
     Route: 065
  30. DRONABINOL. [Suspect]
     Active Substance: DRONABINOL
     Route: 065
  31. FORMOTEROL FUMARATE [Suspect]
     Active Substance: FORMOTEROL FUMARATE
     Indication: PNEUMONIA
     Dosage: ()
     Route: 065
     Dates: start: 201601
  32. LORAZEPAM. [Suspect]
     Active Substance: LORAZEPAM
     Indication: DEMENTIA WITH LEWY BODIES
     Dosage: ()
     Route: 065
     Dates: start: 2016
  33. AMPICILLIN/SULBACTAM ACTAVIS [Suspect]
     Active Substance: AMPICILLIN SODIUM\SULBACTAM SODIUM
     Indication: PNEUMONIA
     Dosage: ()
     Route: 065
     Dates: start: 201601
  34. RIVASTIGMINE. [Concomitant]
     Active Substance: RIVASTIGMINE
     Indication: DEMENTIA WITH LEWY BODIES
     Dosage: ()
     Route: 065
  35. ARIPIPRAZOLE. [Concomitant]
     Active Substance: ARIPIPRAZOLE
     Dosage: ()
     Route: 065
  36. CLOZAPINE. [Concomitant]
     Active Substance: CLOZAPINE
     Dosage: ()
     Route: 065
  37. MIRTAZAPINE. [Concomitant]
     Active Substance: MIRTAZAPINE
     Dosage: ()
     Route: 065

REACTIONS (12)
  - Sleep disorder [Recovering/Resolving]
  - Hangover [Recovering/Resolving]
  - Off label use [Unknown]
  - Paranoia [Recovering/Resolving]
  - Delirium [Unknown]
  - Paradoxical drug reaction [Unknown]
  - Aggression [Recovering/Resolving]
  - Condition aggravated [Recovering/Resolving]
  - Completed suicide [Fatal]
  - Fatigue [Unknown]
  - Rebound effect [Unknown]
  - Withdrawal syndrome [Recovering/Resolving]

NARRATIVE: CASE EVENT DATE: 2016
